FAERS Safety Report 8804616 (Version 5)
Quarter: 2013Q1

REPORT INFORMATION
  Report Type: Spontaneous
  Country: US (occurrence: US)
  Receive Date: 20120922
  Receipt Date: 20130204
  Transmission Date: 20140127
  Serious: Yes (Hospitalization, Other)
  Sender: FDA-Public Use
  Company Number: US-ROXANE LABORATORIES, INC.-2012-RO-01874RO

PATIENT
  Age: 10 Year
  Sex: Male

DRUGS (32)
  1. DEXAMETHASONE [Suspect]
     Indication: ACUTE LYMPHOCYTIC LEUKAEMIA
     Dates: start: 20120731
  2. DEXAMETHASONE [Suspect]
     Dates: start: 20120821, end: 20120825
  3. DEXAMETHASONE [Suspect]
     Route: 048
     Dates: start: 20120915
  4. DASATINIB [Suspect]
     Indication: ACUTE LYMPHOCYTIC LEUKAEMIA
     Dosage: 80 MG
     Route: 048
     Dates: start: 20120604, end: 20121119
  5. ETOPOSIDE [Suspect]
     Indication: ACUTE LYMPHOCYTIC LEUKAEMIA
     Dates: start: 20120823, end: 20120825
  6. METHOTREXATE [Suspect]
     Indication: ACUTE LYMPHOCYTIC LEUKAEMIA
     Dosage: 6.5 G
     Route: 042
     Dates: start: 20120731, end: 20120824
  7. METHOTREXATE [Suspect]
     Route: 037
     Dates: start: 20120824
  8. METHOTREXATE [Suspect]
     Dosage: 12 MG
     Route: 037
     Dates: start: 20120911
  9. METHOTREXATE [Suspect]
     Route: 037
     Dates: start: 20121101
  10. CYTARABINE [Suspect]
     Indication: ACUTE LYMPHOCYTIC LEUKAEMIA
     Route: 037
     Dates: start: 20120731, end: 20120824
  11. CYTARABINE [Suspect]
     Dates: start: 20121101, end: 20121104
  12. VINCRISTINE [Suspect]
     Indication: ACUTE LYMPHOCYTIC LEUKAEMIA
     Dates: start: 20120801, end: 20120805
  13. DAUNORUBICIN [Suspect]
     Indication: ACUTE LYMPHOCYTIC LEUKAEMIA
     Dates: start: 20120804, end: 20120804
  14. PEGASPARGASE [Suspect]
     Indication: ACUTE LYMPHOCYTIC LEUKAEMIA
     Dates: start: 20120808, end: 20120826
  15. HYDROCORTISONE [Suspect]
     Route: 037
     Dates: start: 20120731, end: 20120731
  16. CYCLOPHOSPHAMIDE [Suspect]
  17. MORPHINE SULFATE [Suspect]
  18. LORAZEPAM [Concomitant]
     Dates: start: 20120413
  19. ONDANSETRON [Concomitant]
     Dates: start: 20120413
  20. OSCAL [Concomitant]
     Dates: start: 20120417
  21. VITAMIN D [Concomitant]
     Dates: start: 20120417
  22. POLYETHYLENE GLYCOL [Concomitant]
     Dates: start: 20120413
  23. DRONABINOL [Concomitant]
     Dates: start: 20120417
  24. METOCLOPRAMIDE [Concomitant]
     Dates: start: 20120421
  25. SCOPOLAMINE [Concomitant]
     Dates: start: 20120421
  26. PERIACTIN [Concomitant]
     Dates: start: 20120827
  27. BACTRIM [Concomitant]
     Dates: start: 20120416
  28. CHLORHEXIDINE [Concomitant]
     Dates: start: 20120413
  29. NEUTRA-PHOS [Concomitant]
     Dates: start: 20120417
  30. FLUCONAZOLE [Concomitant]
     Dates: start: 20120413
  31. 6-THIOGUANINE [Concomitant]
     Dates: start: 20121030, end: 20121112
  32. KEPPRA [Concomitant]
     Dates: start: 20120918

REACTIONS (12)
  - Mucosal inflammation [Recovered/Resolved]
  - Febrile neutropenia [Recovered/Resolved]
  - Bacteraemia [Recovered/Resolved]
  - Convulsion [Recovered/Resolved]
  - Stomatitis [Unknown]
  - Dehydration [Recovered/Resolved]
  - Mucosal infection [Recovered/Resolved]
  - Bacterial translocation [Recovered/Resolved]
  - Klebsiella infection [Recovered/Resolved]
  - Cardiac failure [Recovered/Resolved]
  - Pulmonary oedema [Recovered/Resolved]
  - Hypokalaemia [Recovered/Resolved]
